FAERS Safety Report 5234587-6 (Version None)
Quarter: 2007Q1

REPORT INFORMATION
  Report Type: 
  Country: None (occurrence: None)
  Receive Date: 20070209
  Receipt Date: 20070130
  Transmission Date: 20070707
  Serious: Yes (Hospitalization, Other)
  Sender: FDA-Public Use
  Company Number: US-JNJFOC-20070107433

PATIENT
  Age: 38 Year
  Sex: Female

DRUGS (4)
  1. PREZISTA [Suspect]
     Indication: HIV INFECTION
     Route: 048
  2. MK0518 [Concomitant]
     Indication: HIV INFECTION
     Route: 048
  3. ENFUVIRTIDE [Concomitant]
     Indication: HIV INFECTION
     Route: 065
  4. RITONAVIR [Concomitant]
     Indication: HIV INFECTION
     Route: 065

REACTIONS (7)
  - DYSPNOEA [None]
  - FATIGUE [None]
  - LIVER FUNCTION TEST ABNORMAL [None]
  - MYALGIA [None]
  - OEDEMA PERIPHERAL [None]
  - PYREXIA [None]
  - RASH MACULO-PAPULAR [None]
